FAERS Safety Report 5530517-8 (Version None)
Quarter: 2007Q4

REPORT INFORMATION
  Report Type: 
  Country: None (occurrence: None)
  Receive Date: 20071130
  Receipt Date: 20071119
  Transmission Date: 20080405
  Serious: Yes (Other)
  Sender: FDA-Public Use
  Company Number: JP-AVENTIS-200713125JP

PATIENT

DRUGS (1)
  1. LASIX [Suspect]
     Route: 048

REACTIONS (2)
  - HYPOTHYROIDISM [None]
  - SECONDARY ALDOSTERONISM [None]
